FAERS Safety Report 7076240-2 (Version None)
Quarter: 2010Q4

REPORT INFORMATION
  Report Type: 
  Country: None (occurrence: None)
  Receive Date: 20101101
  Receipt Date: 20101020
  Transmission Date: 20110411
  Serious: Yes (Hospitalization, Other)
  Sender: FDA-Public Use
  Company Number: GB-US-EMD SERONO, INC.-7023565

PATIENT
  Age: 34 Year
  Sex: Female

DRUGS (7)
  1. REBIF [Suspect]
     Indication: MULTIPLE SCLEROSIS
     Route: 058
     Dates: start: 20100927, end: 20100101
  2. AMANTADINE HYDROCHLORIDE [Concomitant]
  3. BACLOFEN [Concomitant]
  4. MODAFINIL [Concomitant]
  5. PARACETAMOL [Concomitant]
  6. TRAMADOL [Concomitant]
  7. VENLAFAXINE [Concomitant]

REACTIONS (4)
  - ABDOMINAL PAIN [None]
  - HEADACHE [None]
  - HEPATITIS [None]
  - NAUSEA [None]
